FAERS Safety Report 6449910-4 (Version None)
Quarter: 2009Q4

REPORT INFORMATION
  Report Type: 
  Country: None (occurrence: None)
  Receive Date: 20091123
  Receipt Date: 20091112
  Transmission Date: 20100525
  Serious: Yes (Hospitalization, Disabling)
  Sender: FDA-Public Use
  Company Number: US-BIOGENIDEC-2009BI028171

PATIENT
  Age: 38 Year
  Sex: Female
  Weight: 66 kg

DRUGS (7)
  1. TYSABRI [Suspect]
     Indication: MULTIPLE SCLEROSIS
     Route: 042
     Dates: start: 20081007
  2. PERCOCET [Concomitant]
     Route: 048
  3. ALPRAZOLAM [Concomitant]
     Route: 048
  4. CELEXA [Concomitant]
     Route: 048
  5. TOPAMAX [Concomitant]
     Route: 048
  6. BACLOFEN [Concomitant]
     Route: 048
  7. OMEPRAZOLE [Concomitant]
     Route: 048

REACTIONS (2)
  - FALL [None]
  - MENTAL STATUS CHANGES [None]
